FAERS Safety Report 8927883 (Version 2)
Quarter: 2014Q2

REPORT INFORMATION
  Report Type: Spontaneous
  Country: JP (occurrence: JP)
  Receive Date: 20121127
  Receipt Date: 20140513
  Transmission Date: 20141212
  Serious: Yes (Life-Threatening, Other)
  Sender: FDA-Public Use
  Company Number: JP-ELI_LILLY_AND_COMPANY-JP201211005058

PATIENT
  Age: 50 Year
  Sex: Male
  Weight: 66.2 kg

DRUGS (7)
  1. ZYPREXA [Suspect]
     Indication: DEPRESSION
     Dosage: 20 MG, QD
     Route: 065
  2. FLUVOXAMINE [Suspect]
     Indication: DEPRESSION
     Dosage: 75 MG, QD
     Route: 065
  3. TRAZODONE [Suspect]
     Indication: DEPRESSION
     Dosage: 50 MG, QD
     Route: 065
  4. SULPIRIDE [Suspect]
     Indication: DEPRESSION
     Dosage: 100 MG, QD
     Route: 065
  5. AMLODIPINE [Concomitant]
     Indication: HYPERTENSION
     Dosage: UNK
  6. CANDESARTAN [Concomitant]
     Indication: HYPERTENSION
  7. ATENOLOL [Concomitant]
     Indication: HYPERTENSION
     Dosage: UNK

REACTIONS (7)
  - Ventricular fibrillation [Unknown]
  - Electrocardiogram QT prolonged [Recovered/Resolved]
  - Appendicitis [Unknown]
  - Sinus tachycardia [Unknown]
  - Extrasystoles [Unknown]
  - Ventricular extrasystoles [Unknown]
  - Off label use [Unknown]
